FAERS Safety Report 14520196 (Version 1)
Quarter: 2018Q1

REPORT INFORMATION
  Report Type: Report from Study
  Country: CN (occurrence: CN)
  Receive Date: 20180212
  Receipt Date: 20180212
  Transmission Date: 20180509
  Serious: Yes (Other)
  Sender: FDA-Public Use
  Company Number: CN-MYLANLABS-2018M1008640

PATIENT
  Age: 41 Year
  Sex: Male

DRUGS (3)
  1. DOCETAXEL. [Suspect]
     Active Substance: DOCETAXEL
     Indication: MYASTHENIA GRAVIS
     Dosage: 75 MG/ME2 ON DAY 1, AND THE TREATMENT COULD BE REPEATED AT 3-WEEK INTERVALS, RECEIVED 2 CYCLES
     Route: 065
  2. CISPLATIN. [Suspect]
     Active Substance: CISPLATIN
     Indication: MYASTHENIA GRAVIS
     Dosage: 70 MG/ME2 ON DAY 1, AND THE TREATMENT COULD BE REPEATED AT 3-WEEK INTERVALS, RECEIVED 2 CYCLES
     Route: 065
  3. INSULIN [Concomitant]
     Active Substance: INSULIN NOS
     Indication: TYPE 2 DIABETES MELLITUS
     Dosage: UNK
     Route: 065

REACTIONS (1)
  - Lung infection [Unknown]
